FAERS Safety Report 6081521-5 (Version None)
Quarter: 2009Q1

REPORT INFORMATION
  Report Type: 
  Country: None (occurrence: None)
  Receive Date: 20090218
  Receipt Date: 20090213
  Transmission Date: 20090719
  Serious: Yes (Death)
  Sender: FDA-Public Use
  Company Number: DE-ELI_LILLY_AND_COMPANY-DE200902003068

PATIENT
  Age: 49 Year
  Sex: Male

DRUGS (1)
  1. PEMETREXED [Suspect]
     Indication: NON-SMALL CELL LUNG CANCER
     Dosage: 960 MG, EVERY 21 DAYS
     Route: 065
     Dates: start: 20070327

REACTIONS (1)
  - DEATH [None]
